FAERS Safety Report 4536701-4 (Version None)
Quarter: 2004Q4

REPORT INFORMATION
  Report Type: 
  Country: None (occurrence: None)
  Receive Date: 20041022
  Receipt Date: 20041022
  Transmission Date: 20050328
  Serious: Yes (Hospitalization, Other)
  Sender: FDA-Public Use
  Company Number: None

PATIENT
  Age: 16 Year
  Sex: Female
  Weight: 48.3081 kg

DRUGS (7)
  1. GENTAMICIN [Suspect]
     Dosage: 7 MG/KG IV Q 24 H
     Route: 042
     Dates: start: 20040828, end: 20040902
  2. IBUPROFEN [Suspect]
     Indication: PAIN
     Dosage: 600 MG PO PRN
     Route: 048
     Dates: start: 20040821, end: 20040901
  3. AMPICILLIN [Concomitant]
  4. CLEOCIN [Concomitant]
  5. GENTAMICIN [Concomitant]
  6. HYDROCODONE/APAP [Concomitant]
  7. PHENERGAN [Concomitant]

REACTIONS (4)
  - OBSTRUCTION [None]
  - PELVIC ABSCESS [None]
  - RENAL FAILURE ACUTE [None]
  - RENAL TUBULAR NECROSIS [None]
